FAERS Safety Report 21081372 (Version 1)
Quarter: 2022Q3

REPORT INFORMATION
  Report Type: Spontaneous
  Country: US (occurrence: None)
  Receive Date: 20220713
  Receipt Date: 20220713
  Transmission Date: 20221027
  Serious: No
  Sender: FDA-Public Use
  Company Number: None

PATIENT
  Age: 80 Year
  Sex: Female
  Weight: 53.1 kg

DRUGS (15)
  1. PROLIA [Suspect]
     Active Substance: DENOSUMAB
     Indication: Osteoporosis
     Route: 030
  2. AMLODIPINE BESYLATE [Concomitant]
     Active Substance: AMLODIPINE BESYLATE
  3. HYDROCHLOROTHIAZIDE\SPIRONOLACTONE [Concomitant]
     Active Substance: HYDROCHLOROTHIAZIDE\SPIRONOLACTONE
  4. METOPROLOL SUCCINATE [Concomitant]
     Active Substance: METOPROLOL SUCCINATE
  5. ALPRAZOLAM [Concomitant]
     Active Substance: ALPRAZOLAM
  6. ESTRACE [Concomitant]
     Active Substance: ESTRADIOL
  7. VENTOLIN [Concomitant]
     Active Substance: ALBUTEROL SULFATE
  8. LUMIGAN [Concomitant]
     Active Substance: BIMATOPROST
  9. MINERALS\VITAMINS [Concomitant]
     Active Substance: MINERALS\VITAMINS
  10. GLUCOSAMINE HYDROCHLORIDE\SODIUM CHONDROITIN SULFATE [Concomitant]
     Active Substance: GLUCOSAMINE HYDROCHLORIDE\SODIUM CHONDROITIN SULFATE
  11. CALCIUM [Concomitant]
     Active Substance: CALCIUM
  12. STOOL SOFTENER (DOCUSATE) [Concomitant]
     Active Substance: DOCUSATE
  13. VITAMIN D [Concomitant]
     Active Substance: VITAMIN D NOS
  14. biotin various eye drops for dry eyes [Concomitant]
  15. VITAMIN B COMPLEX [Concomitant]
     Active Substance: CYANOCOBALAMIN\DEXPANTHENOL\NIACINAMIDE\PYRIDOXINE HYDROCHLORIDE\RIBOFLAVIN 5^-PHOSPHATE SODIUM\THIA

REACTIONS (10)
  - Fatigue [None]
  - Alopecia [None]
  - Lip pain [None]
  - Oral discomfort [None]
  - Lip swelling [None]
  - Arthralgia [None]
  - Back pain [None]
  - Musculoskeletal chest pain [None]
  - Nail discomfort [None]
  - Breast discharge [None]

NARRATIVE: CASE EVENT DATE: 20220324
